FAERS Safety Report 14227898 (Version 5)
Quarter: 2020Q1

REPORT INFORMATION
  Report Type: Report from Study
  Country: CA (occurrence: CA)
  Receive Date: 20171127
  Receipt Date: 20200207
  Transmission Date: 20200409
  Serious: Yes (Hospitalization, Other)
  Sender: FDA-Public Use
  Company Number: CA-TAKEDA-2017TUS024205

PATIENT
  Age: 57 Year
  Sex: Female

DRUGS (19)
  1. VEDOLIZUMAB [Suspect]
     Active Substance: VEDOLIZUMAB
     Dosage: 300 MILLIGRAM, Q4WEEKS
     Route: 042
     Dates: start: 20190611
  2. LASIX [Suspect]
     Active Substance: FUROSEMIDE
     Indication: PRODUCT USED FOR UNKNOWN INDICATION
     Dosage: UNK
     Route: 065
  3. HYDROMORPHONE [Concomitant]
     Active Substance: HYDROMORPHONE
     Indication: ARTHRALGIA
     Dosage: 2 MILLIGRAM, BID
  4. BACLOFEN. [Concomitant]
     Active Substance: BACLOFEN
     Indication: MUSCLE RELAXANT THERAPY
     Dosage: UNK
  5. BACLOFEN. [Concomitant]
     Active Substance: BACLOFEN
     Indication: MUSCLE SPASMS
  6. RIFAXIMIN. [Concomitant]
     Active Substance: RIFAXIMIN
     Indication: INFLAMMATORY BOWEL DISEASE
     Dosage: 500 MILLIGRAM
     Route: 048
  7. VEDOLIZUMAB [Suspect]
     Active Substance: VEDOLIZUMAB
     Indication: CROHN^S DISEASE
     Dosage: 300 MILLIGRAM
     Route: 042
     Dates: start: 20170613
  8. VEDOLIZUMAB [Suspect]
     Active Substance: VEDOLIZUMAB
     Dosage: 300 MILLIGRAM, Q4WEEKS
     Route: 042
  9. LACTOSE [Concomitant]
     Active Substance: LACTOSE
     Dosage: UNK
  10. FUROSEMIDE. [Concomitant]
     Active Substance: FUROSEMIDE
     Indication: ABDOMINAL DISTENSION
     Dosage: UNK
  11. ONDANSETRON [Concomitant]
     Active Substance: ONDANSETRON
     Indication: NAUSEA
     Dosage: UNK
  12. SPIRONOLACTONE. [Concomitant]
     Active Substance: SPIRONOLACTONE
     Dosage: UNK
  13. BUPROPION. [Concomitant]
     Active Substance: BUPROPION
     Indication: DEPRESSION
     Dosage: UNK
     Dates: end: 20180210
  14. PREDNISONE. [Concomitant]
     Active Substance: PREDNISONE
     Indication: ARTHRALGIA
     Dosage: UNK
  15. MAGNESIUM [Concomitant]
     Active Substance: MAGNESIUM
     Dosage: UNK, 1/WEEK
  16. DULCOLAX (BISACODYL) [Concomitant]
     Active Substance: BISACODYL
     Dosage: UNK
  17. PANTOPRAZOLE [Concomitant]
     Active Substance: PANTOPRAZOLE
     Dosage: 40 MILLIGRAM, QD
     Route: 048
  18. POTASSIUM [Concomitant]
     Active Substance: POTASSIUM
     Dosage: UNK
  19. VENOFER [Concomitant]
     Active Substance: IRON SUCROSE
     Dosage: UNK, MONTHLY

REACTIONS (10)
  - Off label use [Unknown]
  - Intestinal obstruction [Unknown]
  - Blood magnesium decreased [Unknown]
  - Nausea [Unknown]
  - Hepatic cirrhosis [Unknown]
  - Muscle spasms [Unknown]
  - Blood potassium decreased [Unknown]
  - Ascites [Not Recovered/Not Resolved]
  - Constipation [Unknown]
  - Abdominal pain upper [Unknown]

NARRATIVE: CASE EVENT DATE: 2017
